FAERS Safety Report 10428671 (Version 1)
Quarter: 2014Q3

REPORT INFORMATION
  Report Type: Spontaneous
  Country: CH (occurrence: CH)
  Receive Date: 20140903
  Receipt Date: 20140903
  Transmission Date: 20150326
  Serious: Yes (Hospitalization)
  Sender: FDA-Public Use
  Company Number: PHHY2014CH108321

PATIENT
  Age: 72 Year
  Sex: Male

DRUGS (13)
  1. STALEVO [Suspect]
     Active Substance: CARBIDOPA\ENTACAPONE\LEVODOPA
     Dosage: 100 MG, QID
     Route: 048
  2. SORTIS [Concomitant]
     Active Substance: ATORVASTATIN
     Dosage: 10 MG, UNK
  3. URISPAS [Concomitant]
     Active Substance: FLAVOXATE HYDROCHLORIDE
     Dosage: UNK UKN, UNK
  4. OMEPRAZOLE. [Concomitant]
     Active Substance: OMEPRAZOLE
     Dosage: 20 MG, UNK
  5. SYMMETREL [Suspect]
     Active Substance: AMANTADINE HYDROCHLORIDE
     Dosage: 100 MG, BID
     Route: 048
     Dates: end: 20140319
  6. SIFROL [Suspect]
     Active Substance: PRAMIPEXOLE
     Dosage: 1.5 MG, QD
     Dates: end: 20140319
  7. CLOPIN ECO [Suspect]
     Active Substance: CLOZAPINE
     Dosage: 6.25 MG, DAILY
  8. DANCOR [Concomitant]
     Active Substance: NICORANDIL
     Dosage: 10 MG, UNK
  9. SINEMET [Suspect]
     Active Substance: CARBIDOPA\LEVODOPA
     Dosage: 200 MG DAILY
  10. CLOPIN ECO [Suspect]
     Active Substance: CLOZAPINE
     Dosage: 12.5 MG, DAILY
  11. CLOPIN ECO [Suspect]
     Active Substance: CLOZAPINE
     Dosage: 25 MG, DAILY
     Dates: start: 20140319
  12. SINEMET [Suspect]
     Active Substance: CARBIDOPA\LEVODOPA
     Dosage: 100 MG EVENING
  13. BUPRENORPHINE HCL [Concomitant]
     Active Substance: BUPRENORPHINE HYDROCHLORIDE
     Dosage: UNK UKN, UNK

REACTIONS (4)
  - Electrocardiogram QT prolonged [Recovering/Resolving]
  - Hallucination [Not Recovered/Not Resolved]
  - Delirium [Not Recovered/Not Resolved]
  - Agitation [Not Recovered/Not Resolved]

NARRATIVE: CASE EVENT DATE: 20140319
